FAERS Safety Report 4784012-4 (Version None)
Quarter: 2005Q3

REPORT INFORMATION
  Report Type: 
  Country: None (occurrence: None)
  Receive Date: 20050927
  Receipt Date: 20050822
  Transmission Date: 20060218
  Serious: No
  Sender: FDA-Public Use
  Company Number: SP00492

PATIENT
  Age: 62 Year
  Sex: Female
  Weight: 99.7913 kg

DRUGS (4)
  1. XIFAXAN [Suspect]
     Indication: DIARRHOEA
     Dosage: 200MG/BID,ORAL
     Route: 048
     Dates: start: 20050819
  2. CORGARD [Concomitant]
  3. NEURONTIN [Concomitant]
  4. SYNTHROID [Concomitant]

REACTIONS (3)
  - DYSPHAGIA [None]
  - GINGIVAL SWELLING [None]
  - SWELLING FACE [None]
